FAERS Safety Report 8511198-8 (Version None)
Quarter: 2012Q3

REPORT INFORMATION
  Report Type: 
  Country: None (occurrence: None)
  Receive Date: 20120716
  Receipt Date: 20120704
  Transmission Date: 20120928
  Serious: Yes (Other)
  Sender: FDA-Public Use
  Company Number: JP-MILLENNIUM PHARMACEUTICALS, INC.-2012-04772

PATIENT

DRUGS (6)
  1. MECOBALAMIN [Concomitant]
     Indication: NEUROPATHY PERIPHERAL
  2. VELCADE [Suspect]
     Indication: MULTIPLE MYELOMA
     Dosage: 1 MG/M2, UNK
     Route: 042
     Dates: start: 20110101
  3. TRIMETHOPRIM + SULFAMETHOXAZOLE [Concomitant]
     Indication: PROPHYLAXIS
  4. ACYCLOVIR [Concomitant]
     Indication: PROPHYLAXIS
  5. GOSHAJINKIGAN [Concomitant]
     Indication: NEUROPATHY PERIPHERAL
  6. DEXAMETHASONE [Concomitant]
     Indication: MULTIPLE MYELOMA
     Dosage: 20 MG, UNK
     Dates: start: 20110101

REACTIONS (2)
  - HEPATITIS B [None]
  - PERIPHERAL SENSORY NEUROPATHY [None]
